FAERS Safety Report 6734022-2 (Version None)
Quarter: 2010Q2

REPORT INFORMATION
  Report Type: 
  Country: None (occurrence: None)
  Receive Date: 20100520
  Receipt Date: 20100511
  Transmission Date: 20101027
  Serious: Yes (Hospitalization)
  Sender: FDA-Public Use
  Company Number: DE-ABBOTT-10P-062-0643887-00

PATIENT
  Sex: Female
  Weight: 52 kg

DRUGS (13)
  1. ZEMPLAR [Suspect]
     Indication: HYPERPARATHYROIDISM SECONDARY
     Route: 048
     Dates: start: 20090527
  2. ACETYLSALICYLIC ACID [Concomitant]
     Indication: DRUG USE FOR UNKNOWN INDICATION
     Route: 048
     Dates: start: 20081030
  3. PRAVASTATIN [Concomitant]
     Indication: LIPID METABOLISM DISORDER
     Dates: start: 20041011
  4. CARVEDILOL [Concomitant]
     Indication: DRUG USE FOR UNKNOWN INDICATION
     Dates: start: 20090327
  5. ALLOPURINOL [Concomitant]
     Indication: BLOOD URIC ACID INCREASED
     Dates: start: 20040505
  6. PRAMIPEXOLE DIHYDROCHLORIDE [Concomitant]
     Indication: PARKINSON'S DISEASE
     Dates: start: 20070126
  7. OMEPRAZOLE [Concomitant]
     Indication: PROPHYLAXIS AGAINST GASTROINTESTINAL ULCER
     Route: 048
     Dates: start: 20090225
  8. OSVAREN [Concomitant]
     Indication: RENAL FAILURE
     Dates: start: 20090424
  9. MCP [Concomitant]
     Indication: DRUG USE FOR UNKNOWN INDICATION
     Dosage: 15 GTT IF NECESSARY
     Dates: start: 20090211
  10. FERRLECIT [Concomitant]
     Indication: ANAEMIA
     Route: 042
     Dates: start: 20060118
  11. DEKRISTOL [Concomitant]
     Indication: DRUG USE FOR UNKNOWN INDICATION
     Route: 042
     Dates: start: 20090609
  12. ARANESP [Concomitant]
     Indication: ANAEMIA
     Route: 058
     Dates: start: 20090525
  13. BONDIOL [Concomitant]
     Indication: RENAL FAILURE
     Dosage: 2 TABLETS DAILY

REACTIONS (2)
  - FALL [None]
  - SPINAL FRACTURE [None]
